FAERS Safety Report 16458826 (Version 1)
Quarter: 2019Q2

REPORT INFORMATION
  Report Type: Spontaneous
  Country: US (occurrence: US)
  Receive Date: 20190620
  Receipt Date: 20190620
  Transmission Date: 20190711
  Serious: No
  Sender: FDA-Public Use
  Company Number: US-THERAPEUTICSMD-2019TMD00880

PATIENT
  Sex: Female
  Weight: 53.29 kg

DRUGS (4)
  1. IMVEXXY [Suspect]
     Active Substance: ESTRADIOL
     Dosage: 10 ?G, 2X/WEEK BEFORE BED ON MONDAYS AND THURSDAY
     Route: 067
     Dates: start: 2019, end: 20190422
  2. PRAVASTATIN. [Concomitant]
     Active Substance: PRAVASTATIN
  3. METOPROLOL. [Concomitant]
     Active Substance: METOPROLOL
  4. IMVEXXY [Suspect]
     Active Substance: ESTRADIOL
     Indication: BLADDER PROLAPSE
     Dosage: 10 ?G, 1X/DAY BEFORE BED
     Route: 067
     Dates: start: 2019, end: 2019

REACTIONS (9)
  - Inappropriate schedule of product administration [Recovered/Resolved]
  - Malaise [Recovered/Resolved]
  - Arthralgia [Recovered/Resolved]
  - Fluid retention [Recovered/Resolved]
  - Off label use [Recovered/Resolved]
  - Vulvovaginal pain [Recovered/Resolved]
  - Abdominal pain upper [Recovered/Resolved]
  - Pain in extremity [Recovered/Resolved]
  - Headache [Recovered/Resolved]

NARRATIVE: CASE EVENT DATE: 2019
